FAERS Safety Report 5078688-4 (Version None)
Quarter: 2006Q3

REPORT INFORMATION
  Report Type: 
  Country: None (occurrence: None)
  Receive Date: 20060720
  Receipt Date: 20060616
  Transmission Date: 20061208
  Serious: Yes (Other)
  Sender: FDA-Public Use
  Company Number: HQWYE389426JUN06

PATIENT
  Age: 82 Year
  Sex: Male
  Weight: 79.45 kg

DRUGS (6)
  1. ADVIL PM [Suspect]
     Indication: INSOMNIA
     Dosage: 1 CAPLET X 1, ORAL
     Route: 048
     Dates: start: 20060614, end: 20060614
  2. CAPTOPRIL [Concomitant]
  3. NIASPAN [Concomitant]
  4. METOPROLOL (METOPROLOL) [Concomitant]
  5. ADVIL [Concomitant]
  6. ASPIRIN [Concomitant]

REACTIONS (2)
  - BALANCE DISORDER [None]
  - SOMNOLENCE [None]
